FAERS Safety Report 7204766-7 (Version None)
Quarter: 2010Q4

REPORT INFORMATION
  Report Type: 
  Country: None (occurrence: None)
  Receive Date: 20101230
  Receipt Date: 20101125
  Transmission Date: 20110411
  Serious: No
  Sender: FDA-Public Use
  Company Number: US-PFIZER INC-2010138996

PATIENT
  Sex: Female
  Weight: 51.24 kg

DRUGS (3)
  1. LIPITOR [Suspect]
     Indication: BLOOD CHOLESTEROL INCREASED
     Dosage: 60 MG, DAILY
     Route: 048
  2. FISH OIL [Concomitant]
     Dosage: 1200 MG, 2X/DAY
     Route: 048
  3. NIACIN [Concomitant]
     Indication: BLOOD CHOLESTEROL ABNORMAL
     Dosage: 500 MG, 2X/DAY

REACTIONS (3)
  - DIARRHOEA [None]
  - NAUSEA [None]
  - PRODUCT ODOUR ABNORMAL [None]
